FAERS Safety Report 12609012 (Version 2)
Quarter: 2016Q3

REPORT INFORMATION
  Report Type: Spontaneous
  Country: ES (occurrence: ES)
  Receive Date: 20160731
  Receipt Date: 20160801
  Transmission Date: 20161109
  Serious: Yes (Death, Life-Threatening, Hospitalization, Other)
  Sender: FDA-Public Use
  Company Number: ES-ALLERGAN-1645669

PATIENT
  Age: 56 Year
  Sex: Male

DRUGS (9)
  1. CIMETIDINE [Suspect]
     Active Substance: CIMETIDINE
     Indication: GASTROINTESTINAL HAEMORRHAGE
     Dosage: 400 MG, QD
     Route: 048
     Dates: start: 198512
  2. SUCRALFATE UNK [Suspect]
     Active Substance: SUCRALFATE
     Indication: GASTROINTESTINAL HAEMORRHAGE
     Dosage: 4 G, QD
     Route: 048
  3. PHENYTOIN. [Concomitant]
     Active Substance: PHENYTOIN
     Indication: SEIZURE
  4. ALUMINIUM HYDROXIDE [Suspect]
     Active Substance: ALUMINUM HYDROXIDE
     Dosage: 4 TABLETS, QD
     Route: 048
  5. PHENYTOIN. [Concomitant]
     Active Substance: PHENYTOIN
     Indication: MYOCLONUS
  6. ALUMINIUM HYDROXIDE [Suspect]
     Active Substance: ALUMINUM HYDROXIDE
     Dosage: 6 TABLETS, QD
     Route: 048
  7. PHENOBARBITAL. [Concomitant]
     Active Substance: PHENOBARBITAL
     Indication: SEIZURE
  8. PHENOBARBITAL. [Concomitant]
     Active Substance: PHENOBARBITAL
     Indication: MYOCLONUS
  9. ALUMINIUM HYDROXIDE [Suspect]
     Active Substance: ALUMINUM HYDROXIDE
     Indication: GASTROINTESTINAL HAEMORRHAGE
     Dosage: 12 TABLETS, QD
     Route: 048
     Dates: start: 198512

REACTIONS (14)
  - Toxic encephalopathy [Fatal]
  - Myoclonus [Unknown]
  - Coma [Fatal]
  - Confusional state [Unknown]
  - Parotitis [Fatal]
  - Dysarthria [Unknown]
  - Hyperreflexia [Unknown]
  - Generalised tonic-clonic seizure [Unknown]
  - Agitation [Unknown]
  - Lethargy [Unknown]
  - Drug ineffective [Unknown]
  - Toxicity to various agents [Unknown]
  - Disorientation [Unknown]
  - Septic shock [Fatal]

NARRATIVE: CASE EVENT DATE: 19881201
